FAERS Safety Report 10542731 (Version 5)
Quarter: 2014Q4

REPORT INFORMATION
  Report Type: Spontaneous
  Country: JP (occurrence: JP)
  Receive Date: 20141027
  Receipt Date: 20141224
  Transmission Date: 20150529
  Serious: Yes (Death, Life-Threatening, Hospitalization)
  Sender: FDA-Public Use
  Company Number: JP-UNITED THERAPEUTICS-UNT-2014-009535

PATIENT
  Age: 55 Year
  Sex: Female
  Weight: 43 kg

DRUGS (5)
  1. REMODULIN [Suspect]
     Active Substance: TREPROSTINIL
     Indication: PULMONARY ARTERIAL HYPERTENSION
     Dosage: UNK
     Route: 041
     Dates: start: 20140929
  2. REMODULIN [Suspect]
     Active Substance: TREPROSTINIL
     Dosage: 0.0163 ?G/KG, CONTINUING
     Route: 041
     Dates: start: 2014
  3. REMODULIN [Suspect]
     Active Substance: TREPROSTINIL
     Dosage: 0.0163 ?G/KG, CONTINUING
     Route: 041
     Dates: start: 20141010, end: 20141012
  4. REMODULIN [Suspect]
     Active Substance: TREPROSTINIL
     Dosage: 0.163 ?G/KG, CONTINUING
     Route: 041
     Dates: start: 20141012, end: 20141013
  5. REMODULIN [Suspect]
     Active Substance: TREPROSTINIL
     Dosage: 0.0085 ?G/KG, CONTINUING
     Route: 041
     Dates: start: 20141014

REACTIONS (9)
  - Pulmonary oedema [Unknown]
  - Hypotension [Recovered/Resolved]
  - Hepatic failure [Fatal]
  - Hepatic function abnormal [Unknown]
  - Overdose [Unknown]
  - Gastrointestinal haemorrhage [Unknown]
  - Condition aggravated [Fatal]
  - Platelet count decreased [Unknown]
  - Incorrect dosage administered [Unknown]

NARRATIVE: CASE EVENT DATE: 201410
